FAERS Safety Report 6275575-0 (Version None)
Quarter: 2009Q3

REPORT INFORMATION
  Report Type: 
  Country: None (occurrence: None)
  Receive Date: 20090721
  Receipt Date: 20090720
  Transmission Date: 20100115
  Serious: Yes (Other)
  Sender: FDA-Public Use
  Company Number: DE-WYE-H09749809

PATIENT

DRUGS (1)
  1. TYGACIL [Suspect]
     Indication: FEBRILE NEUTROPENIA
     Dosage: UNKNOWN

REACTIONS (1)
  - HEPATOTOXICITY [None]
